FAERS Safety Report 6092004-0 (Version None)
Quarter: 2009Q1

REPORT INFORMATION
  Report Type: 
  Country: None (occurrence: None)
  Receive Date: 20090225
  Receipt Date: 20081215
  Transmission Date: 20090719
  Serious: No
  Sender: FDA-Public Use
  Company Number: A0760354A

PATIENT
  Age: 34 Year
  Sex: Female

DRUGS (2)
  1. VALTREX [Suspect]
     Indication: GENITAL HERPES
     Dosage: 500MG SINGLE DOSE
     Route: 048
     Dates: start: 20081205
  2. NO CONCURRENT MEDICATION [Concomitant]

REACTIONS (1)
  - PRURITUS GENERALISED [None]
